FAERS Safety Report 21321375 (Version 1)
Quarter: 2022Q3

REPORT INFORMATION
  Report Type: Spontaneous
  Country: US (occurrence: US)
  Receive Date: 20220912
  Receipt Date: 20220912
  Transmission Date: 20221027
  Serious: Yes (Death, Other)
  Sender: FDA-Public Use
  Company Number: US-NOVARTISPH-NVSC2022US204842

PATIENT
  Sex: Male

DRUGS (1)
  1. ENTRESTO [Suspect]
     Active Substance: SACUBITRIL\VALSARTAN
     Indication: Product used for unknown indication
     Dosage: UNK
     Route: 065

REACTIONS (7)
  - Cerebrovascular accident [Fatal]
  - Cardiac failure [Unknown]
  - Diabetes mellitus [Unknown]
  - Infection [Unknown]
  - Wound infection [Unknown]
  - Wound complication [Unknown]
  - Skin disorder [Unknown]

NARRATIVE: CASE EVENT DATE: 20220301
